FAERS Safety Report 21966328 (Version 1)
Quarter: 2023Q1

REPORT INFORMATION
  Report Type: Other
  Country: US (occurrence: None)
  Receive Date: 20230208
  Receipt Date: 20230208
  Transmission Date: 20230417
  Serious: No
  Sender: FDA-Public Use
  Company Number: US-ROCHE-3279637

PATIENT
  Age: 51 Year
  Sex: Male

DRUGS (16)
  1. OCREVUS [Suspect]
     Active Substance: OCRELIZUMAB
     Indication: Multiple sclerosis
     Dosage: DATE OF SERVICE- 30/OCT/2020, 14/DEC/2022, 30/APR/2021, 03/NOV/2021, 14/JUN/2022,
     Route: 042
  2. OCREVUS [Suspect]
     Active Substance: OCRELIZUMAB
     Indication: Relapsing multiple sclerosis
  3. ASPIRIN [Concomitant]
     Active Substance: ASPIRIN
  4. DIAZEPAM [Concomitant]
     Active Substance: DIAZEPAM
  5. DIPHENHYDRAMINE [Concomitant]
     Active Substance: DIPHENHYDRAMINE
  6. DULOXETINE [Concomitant]
     Active Substance: DULOXETINE
  7. GABAPENTIN [Concomitant]
     Active Substance: GABAPENTIN
  8. LAMOTRIGINE [Concomitant]
     Active Substance: LAMOTRIGINE
  9. LEVOTHYROXINE [Concomitant]
     Active Substance: LEVOTHYROXINE
  10. LIOTHYRONINE [Concomitant]
     Active Substance: LIOTHYRONINE
  11. MELOXICAM [Concomitant]
     Active Substance: MELOXICAM
  12. MYRBETRIQ [Concomitant]
     Active Substance: MIRABEGRON
  13. ONDANSETRON [Concomitant]
     Active Substance: ONDANSETRON
  14. SUMATRIPTAN [Concomitant]
     Active Substance: SUMATRIPTAN
  15. TIZANIDINE [Concomitant]
     Active Substance: TIZANIDINE
  16. TOPIRAMATE [Concomitant]
     Active Substance: TOPIRAMATE

REACTIONS (2)
  - Illness [Unknown]
  - COVID-19 [Unknown]
